FAERS Safety Report 19702315 (Version 2)
Quarter: 2022Q4

REPORT INFORMATION
  Report Type: Spontaneous
  Country: DE (occurrence: DE)
  Receive Date: 20210814
  Receipt Date: 20221022
  Transmission Date: 20230113
  Serious: Yes (Hospitalization)
  Sender: FDA-Public Use
  Company Number: DE-ADRED-05852-01

PATIENT
  Age: 70 Year
  Sex: Male

DRUGS (10)
  1. DENOSUMAB [Suspect]
     Active Substance: DENOSUMAB
     Indication: Product used for unknown indication
     Dosage: ACCORDING TO SCHEME, SOLUTION FOR INFUSION/INJECTION
     Route: 058
  2. CABOZANTINIB [Suspect]
     Active Substance: CABOZANTINIB
     Indication: Product used for unknown indication
     Dosage: ACCORDING TO SCHEME, TABLET
     Route: 048
  3. LATANOPROST [Concomitant]
     Active Substance: LATANOPROST
     Dosage: 0.2 ML, IN THE EYE EVENING, DROPS
     Route: 031
  4. LERCANIDIPINE [Concomitant]
     Active Substance: LERCANIDIPINE
     Dosage: 10 MG, 1-0-0-0, TABLET
     Route: 048
  5. CYANOCOBALAMIN [Concomitant]
     Active Substance: CYANOCOBALAMIN
     Dosage: 1000 MUG, 1-0-0-0, TABLET
     Route: 048
  6. CARVEDILOL [Concomitant]
     Active Substance: CARVEDILOL
     Dosage: 12.5 MG, 1-0-1-0, TABLET
     Route: 048
  7. FENTANYL [Concomitant]
     Active Substance: FENTANYL
     Dosage: 2.1 MG, ALLE 3 TAGE, PFLASTER TRANSDERMAL
     Route: 062
  8. DULOXETINE [Concomitant]
     Active Substance: DULOXETINE
     Dosage: 30 MG, 1-0-0-0, TABLET
     Route: 048
  9. CLOPIDOGREL [Concomitant]
     Active Substance: CLOPIDOGREL BISULFATE
     Dosage: 75 MG, 1-0-0-0, TABLET
     Route: 048
  10. DALTEPARIN [Concomitant]
     Active Substance: DALTEPARIN
     Dosage: 0.2 ML, 0-0-1-0, SOLUTION FOR INJECTION/INFUSION
     Route: 058

REACTIONS (3)
  - Hypercalcaemia [Unknown]
  - Diarrhoea [Unknown]
  - Paraesthesia [Unknown]
